FAERS Safety Report 5889729-6 (Version None)
Quarter: 2008Q3

REPORT INFORMATION
  Report Type: 
  Country: None (occurrence: None)
  Receive Date: 20080919
  Receipt Date: 20080909
  Transmission Date: 20090109
  Serious: Yes (Hospitalization)
  Sender: FDA-Public Use
  Company Number: FR-ABBOTT-08P-056-0475337-00

PATIENT
  Sex: Female

DRUGS (1)
  1. DEPAKENE [Suspect]
     Indication: EPILEPSY
     Dates: start: 20080201, end: 20080414

REACTIONS (10)
  - ACUTE HEPATIC FAILURE [None]
  - ANAEMIA [None]
  - CYTOLYTIC HEPATITIS [None]
  - ESCHERICHIA SEPSIS [None]
  - HEPATIC HAEMORRHAGE [None]
  - JAUNDICE [None]
  - NEUROLOGICAL SYMPTOM [None]
  - PARAPLEGIA [None]
  - PSYCHOMOTOR SKILLS IMPAIRED [None]
  - TACHYCARDIA [None]
